FAERS Safety Report 4411480-X (Version None)
Quarter: 2004Q2

REPORT INFORMATION
  Report Type: 
  Country: None (occurrence: None)
  Receive Date: 20040630
  Receipt Date: 20040329
  Transmission Date: 20050107
  Serious: No
  Sender: FDA-Public Use
  Company Number: 04P-163-0255491-00

PATIENT
  Age: 44 Year
  Sex: Male
  Weight: 87.5442 kg

DRUGS (2)
  1. HUMIRA [Suspect]
     Indication: RHEUMATOID ARTHRITIS
     Dosage: 40 MG, 1 IN 2 WK, SUBCUTANEOUS
     Route: 058
     Dates: start: 20031206, end: 20040103
  2. COLCECHINE [Concomitant]

REACTIONS (6)
  - CONDITION AGGRAVATED [None]
  - EYE SWELLING [None]
  - RASH PRURITIC [None]
  - RHEUMATOID ARTHRITIS [None]
  - SWELLING FACE [None]
  - URTICARIA [None]
